FAERS Safety Report 6676137-3 (Version None)
Quarter: 2010Q2

REPORT INFORMATION
  Report Type: 
  Country: None (occurrence: None)
  Receive Date: 20100412
  Receipt Date: 20100331
  Transmission Date: 20101027
  Serious: Yes (Other)
  Sender: FDA-Public Use
  Company Number: US-PFIZER INC-A205427

PATIENT
  Sex: Male
  Weight: 73.923 kg

DRUGS (2)
  1. NAVANE [Suspect]
     Indication: PSYCHOTIC DISORDER
     Dosage: 4 MG, 2X/DAY
     Route: 048
  2. KLONOPIN [Suspect]
     Indication: ANXIETY
     Dosage: 0.25 MG, DAILY
     Route: 048
     Dates: start: 20020401

REACTIONS (9)
  - ANGER [None]
  - ANXIETY [None]
  - DYSPNOEA [None]
  - FATIGUE [None]
  - GOITRE [None]
  - HEART RATE IRREGULAR [None]
  - IRRITABILITY [None]
  - MUSCULAR WEAKNESS [None]
  - PROSTATIC DISORDER [None]
